FAERS Safety Report 24722612 (Version 1)
Quarter: 2024Q4

REPORT INFORMATION
  Report Type: Spontaneous
  Country: US (occurrence: None)
  Receive Date: 20241211
  Receipt Date: 20241211
  Transmission Date: 20250114
  Serious: Yes (Hospitalization)
  Sender: Public
  Company Number: None

PATIENT
  Sex: Female

DRUGS (4)
  1. ICATIBANT ACETATE [Suspect]
     Active Substance: ICATIBANT ACETATE
     Indication: Immune system disorder
     Dosage: FREQUENCY : AS NEEDED;?
     Route: 058
     Dates: start: 202002
  2. ICATIBANT ACETATE PFS (3-PACK) [Concomitant]
  3. TAKHZYRO PFS [Concomitant]
  4. TYMLOS PF PEN [Concomitant]

REACTIONS (4)
  - Urinary tract infection [None]
  - Weight decreased [None]
  - Product dose omission in error [None]
  - Memory impairment [None]
